FAERS Safety Report 8465542-0 (Version None)
Quarter: 2012Q2

REPORT INFORMATION
  Report Type: 
  Country: None (occurrence: None)
  Receive Date: 20120626
  Receipt Date: 20120611
  Transmission Date: 20120825
  Serious: No
  Sender: FDA-Public Use
  Company Number: US-ASTRAZENECA-2012SE27957

PATIENT
  Age: 54 Year
  Sex: Male

DRUGS (2)
  1. PROTONIX [Concomitant]
  2. NEXIUM [Suspect]
     Route: 048

REACTIONS (7)
  - VOMITING [None]
  - INTENTIONAL DRUG MISUSE [None]
  - OESOPHAGEAL ULCER [None]
  - DYSPEPSIA [None]
  - GASTROOESOPHAGEAL REFLUX DISEASE [None]
  - ULCER [None]
  - PAIN [None]
